FAERS Safety Report 21027090 (Version 2)
Quarter: 2022Q2

REPORT INFORMATION
  Report Type: Spontaneous
  Country: US (occurrence: US)
  Receive Date: 20220630
  Receipt Date: 20220630
  Transmission Date: 20220721
  Serious: Yes (Death, Hospitalization, Other)
  Sender: FDA-Public Use
  Company Number: US-BAYER-2022A086445

PATIENT
  Age: 79 Year
  Sex: Female

DRUGS (1)
  1. STIVARGA [Suspect]
     Active Substance: REGORAFENIB
     Indication: Colorectal cancer metastatic
     Dosage: UNK
     Dates: start: 20220501

REACTIONS (6)
  - Abdominal pain upper [Fatal]
  - Intestinal perforation [Fatal]
  - Mobility decreased [None]
  - Fall [None]
  - Hip fracture [None]
  - Bladder disorder [None]

NARRATIVE: CASE EVENT DATE: 20220501
